FAERS Safety Report 6532955-3 (Version None)
Quarter: 2010Q1

REPORT INFORMATION
  Report Type: 
  Country: None (occurrence: None)
  Receive Date: 20100111
  Receipt Date: 20100107
  Transmission Date: 20100710
  Serious: Yes (Death, Hospitalization, Other)
  Sender: FDA-Public Use
  Company Number: ES-BAYER-200938700GPV

PATIENT
  Age: 59 Year
  Sex: Male

DRUGS (8)
  1. CAMPATH [Suspect]
     Indication: STEM CELL TRANSPLANT
     Dosage: DAYS -8 TO -4 PRE-TRANSPLANT
     Route: 042
     Dates: start: 20090724, end: 20090728
  2. FLUDARABINE [Suspect]
     Indication: STEM CELL TRANSPLANT
     Route: 042
  3. MELFALAN [Suspect]
     Indication: STEM CELL TRANSPLANT
     Dosage: DAYS -3 AND -2 PRE-TRANSPLANT
     Route: 042
  4. CYCLOSPORINE [Suspect]
     Indication: PROPHYLAXIS AGAINST GRAFT VERSUS HOST DISEASE
     Route: 042
  5. OMEPRAZOL [Concomitant]
     Indication: PROPHYLAXIS
     Route: 048
     Dates: start: 20090818
  6. ACFOL [Concomitant]
     Indication: VITAMIN SUPPLEMENTATION
     Route: 048
     Dates: start: 20090924
  7. MEGESTROL ACETATE [Concomitant]
     Indication: DECREASED APPETITE
     Route: 048
     Dates: start: 20091021
  8. CYCLOSPORINE [Concomitant]
     Indication: PROPHYLAXIS
     Route: 048
     Dates: start: 20091003

REACTIONS (16)
  - ACUTE RESPIRATORY FAILURE [None]
  - CEREBRAL TOXOPLASMOSIS [None]
  - CYTOMEGALOVIRUS GASTROENTERITIS [None]
  - DIARRHOEA [None]
  - DISORIENTATION [None]
  - ENTEROCOCCAL SEPSIS [None]
  - FUNGAL INFECTION [None]
  - GRAFT VERSUS HOST DISEASE [None]
  - HALLUCINATION, VISUAL [None]
  - HYPERNATRAEMIA [None]
  - METABOLIC ACIDOSIS [None]
  - PNEUMONIA [None]
  - PNEUMONIA BACTERIAL [None]
  - RENAL FAILURE [None]
  - RESPIRATORY TRACT INFECTION [None]
  - SEPTIC SHOCK [None]
